APPROVED DRUG PRODUCT: LOTEMAX SM
Active Ingredient: LOTEPREDNOL ETABONATE
Strength: 0.38%
Dosage Form/Route: GEL;OPHTHALMIC
Application: N208219 | Product #001 | TE Code: AB
Applicant: BAUSCH AND LOMB INC
Approved: Feb 22, 2019 | RLD: Yes | RS: Yes | Type: RX

PATENTS:
Patent 11534395 | Expires: Jan 26, 2036
Patent 10596107 | Expires: Dec 23, 2036